FAERS Safety Report 21149718 (Version 1)
Quarter: 2022Q3

REPORT INFORMATION
  Report Type: Spontaneous
  Country: US (occurrence: US)
  Receive Date: 20220729
  Receipt Date: 20220729
  Transmission Date: 20221027
  Serious: Yes (Hospitalization, Other)
  Sender: FDA-Public Use
  Company Number: US-GILEAD-2022-0591638

PATIENT
  Age: 76 Year
  Sex: Male
  Weight: 67.8 kg

DRUGS (1)
  1. TECARTUS [Suspect]
     Active Substance: BREXUCABTAGENE AUTOLEUCEL
     Indication: Mantle cell lymphoma
     Route: 065

REACTIONS (10)
  - Acute kidney injury [Unknown]
  - Agitation [Unknown]
  - Bradycardia [Unknown]
  - Dyspnoea [Unknown]
  - Hypernatraemia [Unknown]
  - Hypotension [Unknown]
  - Pancytopenia [Unknown]
  - Pleural effusion [Unknown]
  - Pyrexia [Unknown]
  - Tachypnoea [Unknown]

NARRATIVE: CASE EVENT DATE: 20210624
